FAERS Safety Report 6838847-4 (Version None)
Quarter: 2010Q3

REPORT INFORMATION
  Report Type: 
  Country: None (occurrence: None)
  Receive Date: 20100713
  Receipt Date: 20070716
  Transmission Date: 20110219
  Serious: Yes (Other)
  Sender: FDA-Public Use
  Company Number: US-PFIZER INC-2007039296

PATIENT
  Sex: Male
  Weight: 63.5 kg

DRUGS (2)
  1. CHANTIX [Suspect]
     Indication: SMOKING CESSATION THERAPY
     Dates: start: 20070301, end: 20070401
  2. NEURONTIN [Concomitant]

REACTIONS (16)
  - ABDOMINAL PAIN UPPER [None]
  - ASTHENIA [None]
  - BLOOD IRON DECREASED [None]
  - DECREASED APPETITE [None]
  - DIARRHOEA [None]
  - DYSGEUSIA [None]
  - FATIGUE [None]
  - FLATULENCE [None]
  - HEADACHE [None]
  - INSOMNIA [None]
  - LACK OF SPONTANEOUS SPEECH [None]
  - MALAISE [None]
  - MICTURITION DISORDER [None]
  - NAUSEA [None]
  - NIGHTMARE [None]
  - WEIGHT DECREASED [None]
